FAERS Safety Report 9166281 (Version 1)
Quarter: 2013Q1

REPORT INFORMATION
  Report Type: Report from Study
  Country: US (occurrence: US)
  Receive Date: 20130315
  Receipt Date: 20130315
  Transmission Date: 20140127
  Serious: Yes (Hospitalization, Other)
  Sender: FDA-Public Use
  Company Number: US-ABBOTT-13P-163-1059958-00

PATIENT
  Age: 75 Year
  Sex: Female
  Weight: 64.01 kg

DRUGS (15)
  1. HUMIRA [Suspect]
     Indication: RHEUMATOID ARTHRITIS
     Dates: start: 20121228
  2. DOCUSATE [Concomitant]
     Indication: CONSTIPATION
  3. LASIX [Concomitant]
     Indication: FLUID RETENTION
  4. PREDNISONE [Concomitant]
     Indication: RHEUMATOID ARTHRITIS
  5. LEVOTHYROXINE [Concomitant]
     Indication: THYROID DISORDER
  6. RISPERIDONE [Concomitant]
     Indication: DEPRESSION
  7. ALPRAZOLAM [Concomitant]
     Indication: ANXIETY
  8. LOPID [Concomitant]
     Indication: BLOOD CHOLESTEROL INCREASED
  9. FERROUS SULFATE [Concomitant]
     Indication: ANAEMIA
  10. ARAVA [Concomitant]
     Indication: RHEUMATOID ARTHRITIS
  11. VITAMIN D NOS [Concomitant]
     Indication: VITAMIN SUPPLEMENTATION
  12. PRAVASTATIN [Concomitant]
     Indication: BLOOD CHOLESTEROL INCREASED
  13. ARICEPT [Concomitant]
     Indication: DEMENTIA
  14. LEXAPRO [Concomitant]
     Indication: DEPRESSION
  15. LORTAB [Concomitant]
     Indication: PAIN

REACTIONS (6)
  - Haematochezia [Recovered/Resolved]
  - Diarrhoea [Not Recovered/Not Resolved]
  - Gait disturbance [Not Recovered/Not Resolved]
  - Sensation of heaviness [Not Recovered/Not Resolved]
  - Injection site pain [Recovered/Resolved]
  - Large intestinal ulcer [Recovered/Resolved]
